FAERS Safety Report 20710743 (Version 1)
Quarter: 2022Q2

REPORT INFORMATION
  Report Type: Other
  Country: HK (occurrence: None)
  Receive Date: 20220414
  Receipt Date: 20220414
  Transmission Date: 20220720
  Serious: Yes (Other)
  Sender: FDA-Public Use
  Company Number: HK-ROCHE-3073876

PATIENT

DRUGS (2)
  1. RITUXIMAB [Suspect]
     Active Substance: RITUXIMAB
     Indication: Nephrotic syndrome
     Route: 042
  2. RITUXIMAB [Suspect]
     Active Substance: RITUXIMAB
     Indication: Nephrotic syndrome

REACTIONS (1)
  - Aortic dissection [Recovered/Resolved]
